FAERS Safety Report 8523489-5 (Version None)
Quarter: 2012Q3

REPORT INFORMATION
  Report Type: 
  Country: None (occurrence: None)
  Receive Date: 20120720
  Receipt Date: 20120710
  Transmission Date: 20120928
  Serious: Yes (Other)
  Sender: FDA-Public Use
  Company Number: US-JNJFOC-20120704967

PATIENT
  Sex: Female

DRUGS (11)
  1. IMURAN [Concomitant]
     Indication: CROHN'S DISEASE
     Route: 065
     Dates: start: 20050101
  2. LIBRAX [Concomitant]
     Indication: CROHN'S DISEASE
     Dosage: 3 WITH MEALS
     Route: 048
  3. COZAAR [Concomitant]
     Indication: BLOOD PRESSURE
     Route: 065
     Dates: start: 20110901
  4. REMICADE [Suspect]
     Indication: CROHN'S DISEASE
     Route: 042
     Dates: start: 20090301
  5. LISINOPRIL [Suspect]
     Indication: HYPERTENSION
     Route: 048
  6. KLOR-CON [Suspect]
     Indication: MINERAL SUPPLEMENTATION
     Route: 048
     Dates: end: 20100101
  7. CITRACAL [Concomitant]
     Indication: BLOOD CALCIUM
     Route: 048
     Dates: start: 20020101
  8. VITAMIN B-12 [Concomitant]
     Indication: HYPOVITAMINOSIS
     Route: 058
     Dates: start: 20080101
  9. ATACAND [Concomitant]
     Indication: PRODUCT USED FOR UNKNOWN INDICATION
     Route: 065
  10. WELCHOL [Concomitant]
     Indication: FREQUENT BOWEL MOVEMENTS
     Route: 048
     Dates: start: 20080101
  11. HYDROCHLOROTHIAZIDE [Concomitant]
     Indication: BLOOD PRESSURE
     Route: 048

REACTIONS (7)
  - PARAESTHESIA [None]
  - BLOOD POTASSIUM DECREASED [None]
  - MALABSORPTION [None]
  - COUGH [None]
  - MUSCULOSKELETAL STIFFNESS [None]
  - OSTEOPOROSIS [None]
  - SENSORY LOSS [None]
